FAERS Safety Report 15003674 (Version 1)
Quarter: 2018Q2

REPORT INFORMATION
  Report Type: Spontaneous
  Country: MY (occurrence: MY)
  Receive Date: 20180613
  Receipt Date: 20180613
  Transmission Date: 20180711
  Serious: No
  Sender: FDA-Public Use
  Company Number: MY-LUPIN PHARMACEUTICALS INC.-2017-03427

PATIENT
  Age: 50 Year
  Sex: Male

DRUGS (2)
  1. TINIDAZOLE. [Suspect]
     Active Substance: TINIDAZOLE
     Indication: GASTROENTERITIS
     Dosage: 500 MG, BID
     Route: 065
  2. TINIDAZOLE. [Suspect]
     Active Substance: TINIDAZOLE
     Dosage: 50 MG, UNK
     Route: 048

REACTIONS (1)
  - Fixed eruption [Unknown]
